FAERS Safety Report 15553879 (Version 1)
Quarter: 2018Q4

REPORT INFORMATION
  Report Type: Spontaneous
  Country: US (occurrence: US)
  Receive Date: 20181022
  Receipt Date: 20181022
  Transmission Date: 20190205
  Serious: No
  Sender: FDA-Public Use
  Company Number: None

PATIENT
  Age: 76 Year
  Sex: Male
  Weight: 136.08 kg

DRUGS (17)
  1. VITAMIN D3 [Concomitant]
     Active Substance: CHOLECALCIFEROL
  2. METOPROLOL. [Concomitant]
     Active Substance: METOPROLOL
  3. INVOKANA [Concomitant]
     Active Substance: CANAGLIFLOZIN
  4. VICTOZA [Concomitant]
     Active Substance: LIRAGLUTIDE
  5. BUMETANIDE. [Concomitant]
     Active Substance: BUMETANIDE
  6. IRBESARTAN. [Concomitant]
     Active Substance: IRBESARTAN
  7. GABAPENTIN. [Concomitant]
     Active Substance: GABAPENTIN
  8. VALSARTAN. [Concomitant]
     Active Substance: VALSARTAN
  9. LOSARTAN. [Concomitant]
     Active Substance: LOSARTAN
  10. TAMSULOSIN [Concomitant]
     Active Substance: TAMSULOSIN
  11. XARELTO [Concomitant]
     Active Substance: RIVAROXABAN
  12. METOCLOPRAMID SUBSTITUTED FOR REGLAN 10MG [Suspect]
     Active Substance: METOCLOPRAMIDE
     Indication: NAUSEA
     Dosage: ?          QUANTITY:1 DF DOSAGE FORM;?
     Route: 048
     Dates: end: 20181006
  13. PANTOPRAZOLE [Concomitant]
     Active Substance: PANTOPRAZOLE
  14. ATORVASTATIN [Concomitant]
     Active Substance: ATORVASTATIN
  15. IRON [Concomitant]
     Active Substance: IRON
  16. NOVOLOG [Concomitant]
     Active Substance: INSULIN ASPART
  17. PAIN MEDICATION [Concomitant]
     Active Substance: UNSPECIFIED INGREDIENT

REACTIONS (3)
  - Urine odour abnormal [None]
  - Nasal odour [None]
  - Urine abnormality [None]

NARRATIVE: CASE EVENT DATE: 20181005
